FAERS Safety Report 25313019 (Version 2)
Quarter: 2025Q4

REPORT INFORMATION
  Report Type: Spontaneous
  Country: AU (occurrence: AU)
  Receive Date: 20250514
  Receipt Date: 20251016
  Transmission Date: 20260118
  Serious: Yes (Other)
  Sender: MYLAN
  Company Number: AU-MYLANLABS-2025M1022073

PATIENT
  Age: 68 Year
  Sex: Female

DRUGS (1)
  1. CLOZARIL [Suspect]
     Active Substance: CLOZAPINE
     Indication: Schizophrenia
     Dosage: 100 MILLIGRAM

REACTIONS (18)
  - Leukocytosis [Recovering/Resolving]
  - Blood lactate dehydrogenase increased [Recovering/Resolving]
  - Blood potassium increased [Not Recovered/Not Resolved]
  - Glomerular filtration rate decreased [Recovered/Resolved]
  - Blood uric acid decreased [Recovered/Resolved]
  - Blood calcium increased [Recovered/Resolved]
  - Blood bicarbonate decreased [Recovered/Resolved]
  - Blood phosphorus decreased [Recovered/Resolved]
  - Blood urea increased [Recovered/Resolved]
  - Haemoglobin decreased [Recovered/Resolved]
  - Mean cell haemoglobin concentration decreased [Not Recovered/Not Resolved]
  - Aspartate aminotransferase increased [Recovered/Resolved]
  - Alanine aminotransferase increased [Recovered/Resolved]
  - Blood alkaline phosphatase increased [Not Recovered/Not Resolved]
  - Blood creatinine increased [Recovered/Resolved]
  - Gamma-glutamyltransferase increased [Recovered/Resolved]
  - Blood glucose increased [Not Recovered/Not Resolved]
  - Neutrophilia [Unknown]

NARRATIVE: CASE EVENT DATE: 20241216
